FAERS Safety Report 18199507 (Version 2)
Quarter: 2020Q4

REPORT INFORMATION
  Report Type: Spontaneous
  Country: FR (occurrence: FR)
  Receive Date: 20200826
  Receipt Date: 20201116
  Transmission Date: 20210113
  Serious: Yes (Hospitalization, Other)
  Sender: FDA-Public Use
  Company Number: FR-MYLANLABS-2020M1067645

PATIENT
  Age: 75 Year
  Sex: Male

DRUGS (13)
  1. VECTIBIX [Suspect]
     Active Substance: PANITUMUMAB
     Dosage: 500 MILLIGRAM, TOTAL
     Route: 041
     Dates: start: 20200528, end: 20200528
  2. BISOPROLOL FUMARATE. [Concomitant]
     Active Substance: BISOPROLOL FUMARATE
     Indication: HYPERTENSION
     Dosage: 5 MILLIGRAM, QD
     Route: 048
  3. LEVOFOLINATE CALCIUM [Suspect]
     Active Substance: LEVOLEUCOVORIN CALCIUM
     Indication: ADENOCARCINOMA OF COLON
     Dosage: 400 MILLIGRAM, EVERY 15 DAYS
     Route: 042
     Dates: start: 20200514, end: 20200528
  4. EPLERENONE. [Concomitant]
     Active Substance: EPLERENONE
     Indication: DIURETIC THERAPY
     Dosage: 25 MILLIGRAM, QD
     Route: 048
     Dates: end: 20200601
  5. FLUOROURACILE [Concomitant]
     Active Substance: FLUOROURACIL
     Indication: ADENOCARCINOMA OF COLON
     Dosage: 4800 MILLIGRAM, EVERY 15 DAYS
     Route: 042
     Dates: start: 20200514, end: 20200516
  6. DOXYCYCLINE. [Concomitant]
     Active Substance: DOXYCYCLINE
     Dosage: 100 MILLIGRAM, QD
     Route: 048
     Dates: start: 20200505
  7. LOPERAMIDE [Concomitant]
     Active Substance: LOPERAMIDE
     Indication: DIARRHOEA
     Dosage: INCONNUE
     Route: 048
     Dates: start: 20200505
  8. OXALIPLATIN. [Suspect]
     Active Substance: OXALIPLATIN
     Indication: ADENOCARCINOMA OF COLON
     Dosage: 170 MILLIGRAM, EVERY 15 DAYS
     Route: 042
     Dates: start: 20200514, end: 20200528
  9. VECTIBIX [Suspect]
     Active Substance: PANITUMUMAB
     Indication: ADENOCARCINOMA OF COLON
     Dosage: 500 MILLIGRAM, EVERY 15 DAYS
     Route: 042
     Dates: start: 20200514, end: 20200528
  10. METOCLOPRAMIDE. [Concomitant]
     Active Substance: METOCLOPRAMIDE
     Indication: NAUSEA
     Dosage: INCONNUE
     Route: 048
     Dates: start: 20200514
  11. RAMIPRIL. [Concomitant]
     Active Substance: RAMIPRIL
     Indication: HYPERTENSION
     Dosage: 10 MILLIGRAM, QD
     Route: 048
     Dates: end: 20200601
  12. OXALIPLATIN. [Suspect]
     Active Substance: OXALIPLATIN
     Dosage: 170 MILLIGRAM, TOTAL
     Route: 041
     Dates: start: 20200528, end: 20200528
  13. LEVOFOLINATE CALCIUM [Suspect]
     Active Substance: LEVOLEUCOVORIN CALCIUM
     Dosage: 400 MILLIGRAM, TOTAL
     Route: 041
     Dates: start: 20200528, end: 20200528

REACTIONS (4)
  - Livedo reticularis [Recovered/Resolved]
  - Tremor [Recovered/Resolved]
  - Pyrexia [Recovered/Resolved]
  - Acute kidney injury [Recovering/Resolving]

NARRATIVE: CASE EVENT DATE: 20200528
